FAERS Safety Report 8817498 (Version 1)
Quarter: 2012Q4

REPORT INFORMATION
  Report Type: 
  Country: IT (occurrence: IT)
  Receive Date: 20121004
  Receipt Date: 20121004
  Transmission Date: 20130627
  Serious: Yes (Other)
  Sender: FDA-Public Use
  Company Number: IT-PFIZER INC-2012242774

PATIENT
  Age: 68 Year
  Sex: Male

DRUGS (2)
  1. CARDURA [Suspect]
     Dosage: 1 mg, 1x/day
     Route: 048
     Dates: start: 20120601, end: 20120630
  2. CARDURA [Suspect]
     Dosage: 1 mg, 2x/day
     Route: 048
     Dates: start: 20120701, end: 20120915

REACTIONS (5)
  - Deafness [Not Recovered/Not Resolved]
  - Tinnitus [Not Recovered/Not Resolved]
  - Priapism [Recovered/Resolved]
  - Face oedema [Recovered/Resolved]
  - Ear discomfort [Not Recovered/Not Resolved]
